FAERS Safety Report 4922052-2 (Version None)
Quarter: 2006Q1

REPORT INFORMATION
  Report Type: 
  Country: None (occurrence: None)
  Receive Date: 20060224
  Receipt Date: 20060203
  Transmission Date: 20060701
  Serious: Yes (Hospitalization)
  Sender: FDA-Public Use
  Company Number: 2006SE00692

PATIENT
  Age: 796 Day
  Sex: Female
  Weight: 11 kg

DRUGS (2)
  1. BLOPRESS TABLETS 4 [Suspect]
     Route: 048
     Dates: start: 20060126, end: 20060126
  2. AMLODIN [Suspect]
     Route: 048
     Dates: start: 20060126, end: 20060126

REACTIONS (6)
  - ACCIDENTAL DRUG INTAKE BY CHILD [None]
  - BLOOD CREATININE DECREASED [None]
  - BLOOD LACTATE DEHYDROGENASE INCREASED [None]
  - PLATELET COUNT INCREASED [None]
  - RESPIRATORY RATE INCREASED [None]
  - WHITE BLOOD CELL COUNT INCREASED [None]
